FAERS Safety Report 8314509-1 (Version None)
Quarter: 2012Q2

REPORT INFORMATION
  Report Type: 
  Country: None (occurrence: None)
  Receive Date: 20120426
  Receipt Date: 20120413
  Transmission Date: 20120825
  Serious: Yes (Death)
  Sender: FDA-Public Use
  Company Number: JP-ROCHE-1062402

PATIENT
  Age: 77 Year
  Sex: Female

DRUGS (1)
  1. ACTIVASE [Suspect]
     Indication: EMBOLIC STROKE
     Dosage: 18.12MIU
     Route: 042
     Dates: start: 20111025, end: 20111025

REACTIONS (1)
  - CEREBRAL INFARCTION [None]
